FAERS Safety Report 10135982 (Version 1)
Quarter: 2014Q2

REPORT INFORMATION
  Report Type: Report from Study
  Country: US (occurrence: US)
  Receive Date: 20140429
  Receipt Date: 20140429
  Transmission Date: 20141212
  Serious: Yes (Other)
  Sender: FDA-Public Use
  Company Number: US-ROCHE-1388437

PATIENT
  Sex: Female
  Weight: 61.29 kg

DRUGS (12)
  1. AVASTIN [Suspect]
     Indication: COLORECTAL CANCER METASTATIC
     Route: 042
     Dates: start: 201301
  2. PRAVASTATIN [Concomitant]
     Indication: BLOOD CHOLESTEROL
     Route: 048
  3. BABY ASA [Concomitant]
     Route: 048
  4. VITAMIN B12 [Concomitant]
     Route: 048
  5. ATENOLOL [Concomitant]
     Indication: BLOOD PRESSURE
     Route: 065
  6. VITAMIN B COMPLEX [Concomitant]
     Indication: NEUROPATHY PERIPHERAL
     Route: 065
  7. OMEGA 3 FATTY ACIDS [Concomitant]
     Route: 065
  8. CALCIUM CITRATE WITH D [Concomitant]
     Dosage: IN AM AND PM
     Route: 065
  9. PANTOPRAZOLE [Concomitant]
     Indication: GASTROOESOPHAGEAL REFLUX DISEASE
     Route: 065
  10. FLONASE [Concomitant]
     Route: 065
  11. MUPIROCIN [Concomitant]
     Route: 065
     Dates: start: 20140418
  12. AMLODIPINE [Concomitant]

REACTIONS (2)
  - Staphylococcal infection [Recovered/Resolved]
  - Pseudomonas infection [Recovered/Resolved]
